FAERS Safety Report 23363224 (Version 2)
Quarter: 2024Q1

REPORT INFORMATION
  Report Type: Spontaneous
  Country: US (occurrence: US)
  Receive Date: 20240103
  Receipt Date: 20240202
  Transmission Date: 20240410
  Serious: Yes (Life-Threatening, Other)
  Sender: FDA-Public Use
  Company Number: US-002147023-NVSC2023US275974

PATIENT
  Sex: Female

DRUGS (3)
  1. ENTRESTO [Suspect]
     Active Substance: SACUBITRIL\VALSARTAN
     Indication: Stress cardiomyopathy
     Dosage: UNK, QD
     Route: 048
  2. ENTRESTO [Suspect]
     Active Substance: SACUBITRIL\VALSARTAN
     Indication: Myocardial infarction
  3. LASIX [Concomitant]
     Active Substance: FUROSEMIDE
     Indication: Product used for unknown indication
     Dosage: UNK
     Route: 065

REACTIONS (16)
  - Feeling abnormal [Unknown]
  - Cardiac failure [Unknown]
  - Dyspnoea [Unknown]
  - Cardiac failure acute [Unknown]
  - Nausea [Unknown]
  - Malaise [Unknown]
  - Lethargy [Unknown]
  - Dizziness [Unknown]
  - Gait disturbance [Recovering/Resolving]
  - Abdominal pain upper [Unknown]
  - Weight increased [Unknown]
  - Swelling face [Unknown]
  - Cough [Unknown]
  - Visual acuity reduced [Unknown]
  - Product storage error [Unknown]
  - Product use in unapproved indication [Unknown]
